FAERS Safety Report 8801941 (Version 1)
Quarter: 2012Q4

REPORT INFORMATION
  Report Type: 
  Country: US (occurrence: US)
  Receive Date: 20120921
  Receipt Date: 20120921
  Transmission Date: 20130627
  Serious: No
  Sender: FDA-Public Use
  Company Number: US-PFIZER INC-2012233877

PATIENT
  Age: 64 Year
  Sex: Female
  Weight: 40.82 kg

DRUGS (5)
  1. CHANTIX [Suspect]
     Indication: SMOKING CESSATION THERAPY
     Dosage: 0.5 mg, Daily
     Dates: start: 20120913, end: 201209
  2. CHANTIX [Suspect]
     Dosage: 0.5 mg, 2x/day
     Dates: start: 201209
  3. ASPIRIN [Concomitant]
     Dosage: 300 mg, UNK
  4. CARTIA (DILTIAZEM) [Concomitant]
     Indication: CARDIOVASCULAR EVENT PROPHYLAXIS
     Dosage: UNK
  5. VITAMIN B12 [Concomitant]
     Indication: VITAMIN B12 DECREASED
     Dosage: UNK

REACTIONS (2)
  - Abnormal dreams [Not Recovered/Not Resolved]
  - Insomnia [Not Recovered/Not Resolved]
